FAERS Safety Report 8154543-8 (Version None)
Quarter: 2012Q1

REPORT INFORMATION
  Report Type: 
  Country: None (occurrence: None)
  Receive Date: 20120216
  Receipt Date: 20120208
  Transmission Date: 20120608
  Serious: Yes (Hospitalization, Disabling)
  Sender: FDA-Public Use
  Company Number: 2011SP048232

PATIENT
  Age: 32 Year
  Sex: Female
  Weight: 144.6975 kg

DRUGS (3)
  1. NUVARING [Suspect]
     Indication: CONTRACEPTION
     Dates: start: 20070120, end: 20090505
  2. NUVARING [Suspect]
  3. NUVARING [Suspect]

REACTIONS (12)
  - ACUTE MYOCARDIAL INFARCTION [None]
  - HYPERTENSION [None]
  - INTRACARDIAC THROMBUS [None]
  - VENTRICULAR HYPOKINESIA [None]
  - CORONARY ARTERY EMBOLISM [None]
  - SINUSITIS [None]
  - CARDIOMEGALY [None]
  - HYPERLIPIDAEMIA [None]
  - HYPOKALAEMIA [None]
  - CARDIAC FAILURE [None]
  - LOSS OF EMPLOYMENT [None]
  - THROMBOSIS [None]
